FAERS Safety Report 9225081 (Version 1)
Quarter: 2013Q1

REPORT INFORMATION
  Report Type: Spontaneous
  Country: US (occurrence: None)
  Receive Date: 20120912
  Receipt Date: 20120912
  Transmission Date: 20140127
  Serious: No
  Sender: FDA-Public Use
  Company Number: 2012SP022830

PATIENT
  Age: 60 Year
  Sex: Male

DRUGS (9)
  1. VICTRELIS [Suspect]
     Indication: HEPATITIS C
     Route: 048
     Dates: end: 20120518
  2. RIBAVIRIN [Suspect]
     Indication: PRODUCT USED FOR UNKNOWN INDICATION
     Dates: end: 20120518
  3. PEGASYS [Suspect]
     Indication: PRODUCT USED FOR UNKNOWN INDICATION
     Dates: end: 20120511
  4. SINGULAR [Concomitant]
  5. SEREVENT [Concomitant]
  6. OMEPRAZOLE [Concomitant]
  7. COMBIVENT [Concomitant]
  8. ALBUTEROL [Concomitant]
  9. QVAR [Concomitant]

REACTIONS (5)
  - Anaemia [None]
  - Cough [None]
  - Fatigue [None]
  - Headache [None]
  - Dyspnoea [None]
